FAERS Safety Report 5131119-8 (Version None)
Quarter: 2006Q4

REPORT INFORMATION
  Report Type: 
  Country: None (occurrence: None)
  Receive Date: 20061016
  Receipt Date: 20061006
  Transmission Date: 20070319
  Serious: Yes (Congenital Anomaly, Other)
  Sender: FDA-Public Use
  Company Number: 2006123802

PATIENT
  Sex: 0

DRUGS (1)
  1. FRAGMIN [Suspect]

REACTIONS (4)
  - CAESAREAN SECTION [None]
  - DEATH NEONATAL [None]
  - DRUG EXPOSURE DURING PREGNANCY [None]
  - TURNER'S SYNDROME [None]
